FAERS Safety Report 9210486 (Version 3)
Quarter: 2013Q3

REPORT INFORMATION
  Report Type: Report from Study
  Country: CZ (occurrence: CZ)
  Receive Date: 20130404
  Receipt Date: 20130912
  Transmission Date: 20140515
  Serious: Yes (Hospitalization)
  Sender: FDA-Public Use
  Company Number: CZ-ABBOTT-13P-217-1068866-00

PATIENT
  Age: 23 Year
  Sex: Female
  Weight: 52 kg

DRUGS (2)
  1. HUMIRA [Suspect]
     Indication: CROHN^S DISEASE
     Dosage: 80 MG INDUCTION; 40 MG WEEK 2
     Route: 058
     Dates: start: 20091016
  2. SALOFALK [Concomitant]
     Indication: CROHN^S DISEASE
     Dosage: 3000-1500MG DAILY
     Dates: start: 20090401

REACTIONS (1)
  - Cervical dysplasia [Recovered/Resolved]
